FAERS Safety Report 19805381 (Version 1)
Quarter: 2021Q3

REPORT INFORMATION
  Report Type: Report from Study
  Country: DE (occurrence: DE)
  Receive Date: 20210908
  Receipt Date: 20210908
  Transmission Date: 20211014
  Serious: Yes (Other)
  Sender: FDA-Public Use
  Company Number: DE-MYLANLABS-2021M1059527

PATIENT
  Sex: Female
  Weight: 71 kg

DRUGS (12)
  1. KISQALI [Suspect]
     Active Substance: RIBOCICLIB
     Dosage: 600 MG DAILY DOSE (SCHEMA 21 DAYS INTAKE INTAKE, THAN 7 DAYS PAUSE)
     Route: 048
     Dates: start: 20200805, end: 20200929
  2. KISQALI [Suspect]
     Active Substance: RIBOCICLIB
     Dosage: 600 MG DAILY DOSE (SCHEMA 21 DAYS INTAKE INTAKE, THAN 7 DAYS PAUSE)
     Route: 048
     Dates: start: 20201012, end: 20201129
  3. KISQALI [Suspect]
     Active Substance: RIBOCICLIB
     Dosage: 600 MG DAILY DOSE (SCHEMA 21 DAYS INTAKE INTAKE, THAN 7 DAYS PAUSE)
     Route: 048
     Dates: start: 20191112, end: 20200101
  4. KISQALI [Suspect]
     Active Substance: RIBOCICLIB
     Dosage: 600 MG DAILY DOSE (SCHEMA 21 DAYS INTAKE INTAKE, THAN 7 DAYS PAUSE)
     Route: 048
     Dates: start: 20200421, end: 20200511
  5. KISQALI [Suspect]
     Active Substance: RIBOCICLIB
     Dosage: 600 MG DAILY DOSE (SCHEMA 21 DAYS INTAKE INTAKE, THAN 7 DAYS PAUSE)
     Route: 048
     Dates: start: 20200527, end: 20200623
  6. KISQALI [Suspect]
     Active Substance: RIBOCICLIB
     Indication: BREAST CANCER METASTATIC
     Dosage: 600 MG, QD (SCHEME 21 DAYS INTAKE, THAN 7 DAYS PAUSE)
     Route: 048
     Dates: start: 20191010, end: 20191106
  7. KISQALI [Suspect]
     Active Substance: RIBOCICLIB
     Dosage: 600 MG DAILY DOSE (SCHEMA 21 DAYS INTAKE INTAKE, THAN 7 DAYS PAUSE)
     Route: 048
     Dates: start: 20200220, end: 20200408
  8. LETROZOLE. [Suspect]
     Active Substance: LETROZOLE
     Indication: BREAST CANCER METASTATIC
     Dosage: 2.5 MG, QD(DAILY)
     Route: 048
     Dates: start: 20191010
  9. KISQALI [Suspect]
     Active Substance: RIBOCICLIB
     Dosage: 600 MG DAILY DOSE (SCHEMA 21 DAYS INTAKE INTAKE, THAN 7 DAYS PAUSE)
     Route: 048
     Dates: start: 20200701, end: 20200728
  10. KISQALI [Suspect]
     Active Substance: RIBOCICLIB
     Dosage: 600 MG DAILY DOSE (SCHEMA 21 DAYS INTAKE INTAKE, THAN 7 DAYS PAUSE)
     Route: 048
     Dates: start: 20201217, end: 20210113
  11. KISQALI [Suspect]
     Active Substance: RIBOCICLIB
     Dosage: 600 MG DAILY DOSE (SCHEMA 21 DAYS INTAKE INTAKE, THAN 7 DAYS PAUSE)
     Route: 048
     Dates: start: 20200116, end: 20200205
  12. KISQALI [Suspect]
     Active Substance: RIBOCICLIB
     Dosage: 600 MG DAILY DOSE (SCHEMA 21 DAYS INTAKE INTAKE, THAN 7 DAYS PAUSE)
     Route: 048
     Dates: start: 20210121

REACTIONS (3)
  - Neutropenia [Recovered/Resolved]
  - Visual impairment [Recovered/Resolved]
  - Dry eye [Recovered/Resolved]

NARRATIVE: CASE EVENT DATE: 20191025
